FAERS Safety Report 9506047 (Version 1)
Quarter: 2013Q1

REPORT INFORMATION
  Report Type: Spontaneous
  Country: US (occurrence: None)
  Receive Date: 20130206
  Receipt Date: 20130206
  Transmission Date: 20140127
  Serious: Yes (Other)
  Sender: FDA-Public Use
  Company Number: DAV-AE-MTX-12-04

PATIENT
  Age: 57 Year
  Sex: Female
  Weight: 58.97 kg

DRUGS (3)
  1. METHOTREXATE [Suspect]
     Indication: RHEUMATOID ARTHRITIS
     Dosage: 2.5 MG. 4X^S /DAY/ WK. 6 MONTHS
  2. PREDNISONE 5 MG./ DAY FOR 10 YEARS [Concomitant]
  3. VITAMINIS [Concomitant]

REACTIONS (1)
  - Alopecia [None]
